FAERS Safety Report 9115932 (Version 3)
Quarter: 2014Q1

REPORT INFORMATION
  Report Type: Spontaneous
  Country: DE (occurrence: DE)
  Receive Date: 20130225
  Receipt Date: 20140227
  Transmission Date: 20141002
  Serious: Yes (Hospitalization, Disabling)
  Sender: FDA-Public Use
  Company Number: DE-VIIV HEALTHCARE LIMITED-D0078877A

PATIENT
  Age: 44 Year
  Sex: Female
  Weight: 72 kg

DRUGS (3)
  1. KIVEXA [Suspect]
     Indication: HIV INFECTION
     Dosage: 900MG IN THE MORNING
     Route: 048
     Dates: start: 20120508, end: 20130218
  2. TRIZIVIR [Concomitant]
     Indication: HIV INFECTION
     Dosage: 750MG TWICE PER DAY
     Route: 048
     Dates: start: 20050412, end: 20120507
  3. ISENTRESS [Concomitant]
     Indication: HIV INFECTION
     Dosage: 400MG TWICE PER DAY
     Route: 048
     Dates: start: 20120508

REACTIONS (5)
  - Acute myocardial infarction [Recovered/Resolved with Sequelae]
  - Ventricular hypokinesia [Not Recovered/Not Resolved]
  - Hypertension [Unknown]
  - Ejection fraction decreased [Not Recovered/Not Resolved]
  - Cardiac failure [Not Recovered/Not Resolved]
